FAERS Safety Report 9687162 (Version 2)
Quarter: 2013Q4

REPORT INFORMATION
  Report Type: Report from Study
  Country: US (occurrence: US)
  Receive Date: 20131113
  Receipt Date: 20131118
  Transmission Date: 20140711
  Serious: Yes (Hospitalization)
  Sender: FDA-Public Use
  Company Number: US-ROCHE-1303273

PATIENT
  Sex: Female

DRUGS (3)
  1. XOLAIR [Suspect]
     Indication: ASTHMA
     Route: 065
  2. LEVAQUIN [Concomitant]
     Dosage: X 14 DAYS
     Route: 065
  3. KENALOG (UNITED STATES) [Concomitant]
     Route: 030

REACTIONS (10)
  - Asthma [Unknown]
  - Asthma [Unknown]
  - Wheezing [Unknown]
  - Productive cough [Unknown]
  - Nasal mucosal disorder [Unknown]
  - Nasal discharge discolouration [Unknown]
  - Rhonchi [Unknown]
  - Bronchitis [Unknown]
  - Rhinitis allergic [Unknown]
  - Conjunctivitis allergic [Unknown]
